FAERS Safety Report 11703939 (Version 1)
Quarter: 2015Q4

REPORT INFORMATION
  Report Type: Spontaneous
  Country: JP (occurrence: JP)
  Receive Date: 20151106
  Receipt Date: 20151106
  Transmission Date: 20160304
  Serious: Yes (Hospitalization)
  Sender: FDA-Public Use
  Company Number: JP-ACCORD-035137

PATIENT
  Age: 60 Year
  Sex: Female

DRUGS (2)
  1. METHOTREXATE [Suspect]
     Active Substance: METHOTREXATE
     Indication: RHEUMATOID ARTHRITIS
  2. ETODOLAC. [Concomitant]
     Active Substance: ETODOLAC

REACTIONS (3)
  - Epigastric discomfort [Recovered/Resolved]
  - Cytomegalovirus duodenitis [Recovered/Resolved]
  - Cellulitis [Recovered/Resolved]
